FAERS Safety Report 5810164-0 (Version None)
Quarter: 2008Q3

REPORT INFORMATION
  Report Type: 
  Country: None (occurrence: None)
  Receive Date: 20080715
  Receipt Date: 20070829
  Transmission Date: 20090109
  Serious: No
  Sender: FDA-Public Use
  Company Number: A0677356A

PATIENT
  Age: 52 Year
  Sex: Female

DRUGS (12)
  1. IMITREX [Suspect]
     Indication: MIGRAINE
     Dosage: 100MG AS REQUIRED
     Route: 048
  2. METFORMIN [Concomitant]
  3. ATENOLOL [Concomitant]
  4. ZETIA [Concomitant]
  5. COZAAR [Concomitant]
  6. HYDROCHLOROTHIAZIDE [Concomitant]
  7. GLYBURIDE [Concomitant]
  8. AMITRIPTYLINE HCL [Concomitant]
  9. ACTOS [Concomitant]
  10. LEVOTHYROXINE SODIUM [Concomitant]
  11. FUROSEMIDE [Concomitant]
  12. CLOTRIMAZOLE [Concomitant]

REACTIONS (1)
  - NAUSEA [None]
